FAERS Safety Report 9771218 (Version 2)
Quarter: 2014Q1

REPORT INFORMATION
  Report Type: Spontaneous
  Country: US (occurrence: US)
  Receive Date: 20131218
  Receipt Date: 20140207
  Transmission Date: 20141002
  Serious: No
  Sender: FDA-Public Use
  Company Number: US-PFIZER INC-2013357621

PATIENT
  Age: 45 Year
  Sex: Female
  Weight: 68.03 kg

DRUGS (3)
  1. ADVIL PM [Suspect]
     Indication: HEADACHE
     Dosage: TWO CAPLETS OF 200/38 MG ONCE A DAY
     Route: 048
     Dates: start: 20131211, end: 20131212
  2. ADVIL PM [Suspect]
     Indication: INSOMNIA
  3. GLUCOSAMINE [Concomitant]
     Indication: ARTHROPATHY
     Dosage: UNK

REACTIONS (6)
  - Hangover [Not Recovered/Not Resolved]
  - Headache [Not Recovered/Not Resolved]
  - Eye disorder [Not Recovered/Not Resolved]
  - Eye pain [Not Recovered/Not Resolved]
  - Dry mouth [Not Recovered/Not Resolved]
  - Malaise [Not Recovered/Not Resolved]
